FAERS Safety Report 10170578 (Version 3)
Quarter: 2014Q4

REPORT INFORMATION
  Report Type: Spontaneous
  Country: IE (occurrence: IE)
  Receive Date: 20140513
  Receipt Date: 20141017
  Transmission Date: 20150528
  Serious: Yes (Hospitalization, Other)
  Sender: FDA-Public Use
  Company Number: PHFR2014IE003386

PATIENT
  Age: 45 Year
  Sex: Male

DRUGS (7)
  1. ALPRAZOLAM. [Concomitant]
     Active Substance: ALPRAZOLAM
     Indication: ANXIETY
     Dosage: 0.5 MG, TID
     Route: 048
  2. CEPHALEXIN. [Suspect]
     Active Substance: CEPHALEXIN
     Indication: LIVER FUNCTION TEST ABNORMAL
     Dosage: UNK
     Route: 065
  3. KEPPRA [Concomitant]
     Active Substance: LEVETIRACETAM
     Indication: SEIZURE
     Dosage: 500 MG, DAILY
     Route: 048
  4. KEFLEX [Concomitant]
     Active Substance: CEPHALEXIN
     Indication: PRODUCT USED FOR UNKNOWN INDICATION
     Dosage: 500 MG (5 DAYS)
     Route: 065
     Dates: start: 20140502
  5. CLOZARIL [Suspect]
     Active Substance: CLOZAPINE
     Dosage: 250 MG, DAILY
     Route: 048
     Dates: start: 20120821, end: 20140508
  6. FLUOXETINE [Concomitant]
     Active Substance: FLUOXETINE\FLUOXETINE HYDROCHLORIDE
     Indication: ANXIETY
     Dosage: 40 MG, DAILY
     Route: 048
  7. ATENOLOL. [Concomitant]
     Active Substance: ATENOLOL
     Indication: SINUS TACHYCARDIA
     Dosage: 100 MG, DAILY
     Route: 048

REACTIONS (8)
  - Neutrophil count increased [Recovered/Resolved]
  - Cholecystitis [Recovering/Resolving]
  - Jaundice [Recovered/Resolved]
  - White blood cell count increased [Recovered/Resolved]
  - Biliary dilatation [Unknown]
  - Liver function test abnormal [Recovering/Resolving]
  - Cholelithiasis [Recovering/Resolving]
  - Nausea [Recovered/Resolved]

NARRATIVE: CASE EVENT DATE: 20140408
